FAERS Safety Report 6282912-X (Version None)
Quarter: 2009Q3

REPORT INFORMATION
  Report Type: 
  Country: None (occurrence: None)
  Receive Date: 20090724
  Receipt Date: 20090721
  Transmission Date: 20100115
  Serious: Yes (Disabling)
  Sender: FDA-Public Use
  Company Number: US-MERCK-0905USA03882

PATIENT
  Age: 68 Year
  Sex: Female

DRUGS (2)
  1. VYTORIN [Suspect]
     Indication: HYPERCHOLESTEROLAEMIA
     Route: 048
     Dates: start: 20090415, end: 20090422
  2. VITAMINS (UNSPECIFIED) [Concomitant]
     Route: 065

REACTIONS (15)
  - ARTHRALGIA [None]
  - BURNING SENSATION [None]
  - FATIGUE [None]
  - FEELING COLD [None]
  - FEELING HOT [None]
  - MUSCULOSKELETAL STIFFNESS [None]
  - MYALGIA [None]
  - PAIN [None]
  - PAIN IN EXTREMITY [None]
  - PHOTOSENSITIVITY REACTION [None]
  - PRURITUS GENERALISED [None]
  - RASH [None]
  - RHEUMATOID ARTHRITIS [None]
  - STRESS [None]
  - SWELLING [None]
